FAERS Safety Report 21232583 (Version 1)
Quarter: 2022Q3

REPORT INFORMATION
  Report Type: Spontaneous
  Country: US (occurrence: None)
  Receive Date: 20220818
  Receipt Date: 20220818
  Transmission Date: 20221027
  Serious: No
  Sender: FDA-Public Use
  Company Number: None

PATIENT
  Age: 15 Year
  Sex: Female
  Weight: 38.19 kg

DRUGS (1)
  1. ENBREL [Suspect]
     Active Substance: ETANERCEPT
     Indication: Pyrexia
     Dosage: INJECT 25MG (0.5ML) SUBCUTANEOUSLY  TWO TIMES A WEEKL 72-96 HOURS APART AS DIRECTED?
     Route: 058
     Dates: start: 201801

REACTIONS (1)
  - Megacolon [None]
